FAERS Safety Report 11787589 (Version 1)
Quarter: 2015Q4

REPORT INFORMATION
  Report Type: Spontaneous
  Country: US (occurrence: US)
  Receive Date: 20151130
  Receipt Date: 20151130
  Transmission Date: 20160305
  Serious: Yes (Other)
  Sender: FDA-Public Use
  Company Number: US-SUNOVION-2015SUN001050

PATIENT
  Age: 22 Year
  Sex: Female

DRUGS (2)
  1. LAMICTAL [Suspect]
     Active Substance: LAMOTRIGINE
     Dosage: UNK
  2. APTIOM [Suspect]
     Active Substance: ESLICARBAZEPINE ACETATE
     Dosage: 400 MG, UNK
     Route: 048
     Dates: start: 20151102

REACTIONS (7)
  - Insomnia [Unknown]
  - Nausea [Unknown]
  - Dizziness [Unknown]
  - Weight decreased [Unknown]
  - Fatigue [Unknown]
  - Vomiting [Unknown]
  - Seizure [Unknown]

NARRATIVE: CASE EVENT DATE: 20151122
